FAERS Safety Report 8935824 (Version 1)
Quarter: 2012Q4

REPORT INFORMATION
  Report Type: 
  Country: FR (occurrence: FR)
  Receive Date: 20121130
  Receipt Date: 20121130
  Transmission Date: 20130627
  Serious: Yes (Death, Hospitalization)
  Sender: FDA-Public Use
  Company Number: FR-BRISTOL-MYERS SQUIBB COMPANY-17152687

PATIENT
  Age: 93 Year
  Sex: Male

DRUGS (1)
  1. COUMADIN TABS 2 MG [Suspect]
     Route: 048
     Dates: start: 2008, end: 20120717

REACTIONS (2)
  - Rectal haemorrhage [Not Recovered/Not Resolved]
  - Death [Fatal]
